FAERS Safety Report 17732512 (Version 1)
Quarter: 2020Q2

REPORT INFORMATION
  Report Type: Spontaneous
  Country: US (occurrence: US)
  Receive Date: 20200501
  Receipt Date: 20200501
  Transmission Date: 20200714
  Serious: Yes (Hospitalization)
  Sender: FDA-Public Use
  Company Number: US-SAREPTA THERAPEUTICS INC.-SRP2020-000738

PATIENT
  Sex: Male

DRUGS (1)
  1. EXONDYS 51 [Suspect]
     Active Substance: ETEPLIRSEN
     Indication: MUSCULAR DYSTROPHY
     Dosage: 1320 MG, WEEKLY
     Route: 042
     Dates: start: 201711

REACTIONS (3)
  - Gastrointestinal infection [Unknown]
  - Product dose omission [Unknown]
  - Respiratory failure [Unknown]

NARRATIVE: CASE EVENT DATE: 2020
